FAERS Safety Report 9163857 (Version 1)
Quarter: 2013Q1

REPORT INFORMATION
  Report Type: Spontaneous
  Country: NL (occurrence: NL)
  Receive Date: 20130314
  Receipt Date: 20130314
  Transmission Date: 20140127
  Serious: Yes (Other)
  Sender: FDA-Public Use
  Company Number: NL-ROXANE LABORATORIES, INC.-2013-RO-00362RO

PATIENT
  Age: 56 Year
  Sex: Female

DRUGS (1)
  1. LITHIUM CARBONATE [Suspect]
     Indication: SCHIZOAFFECTIVE DISORDER

REACTIONS (5)
  - Hyperparathyroidism [Recovered/Resolved]
  - Renal impairment [Unknown]
  - Nephrogenic diabetes insipidus [Unknown]
  - Parathyroid tumour benign [Recovered/Resolved]
  - Polyuria [Unknown]
